FAERS Safety Report 16783063 (Version 1)
Quarter: 2019Q3

REPORT INFORMATION
  Report Type: Report from Study
  Country: US (occurrence: US)
  Receive Date: 20190906
  Receipt Date: 20190906
  Transmission Date: 20191005
  Serious: Yes (Death)
  Sender: FDA-Public Use
  Company Number: US-ELI_LILLY_AND_COMPANY-US201909001922

PATIENT

DRUGS (9)
  1. APATORSEN [Suspect]
     Active Substance: APATORSEN
     Dosage: 600 MG, TREATMENT PHASE (WEEKLY ON DAY 1, 8, 15 OF A 21-DAY CYCLE CONCURRENT WITH CHEMOTHERAPY)
     Route: 042
  2. APATORSEN [Suspect]
     Active Substance: APATORSEN
     Dosage: 600 MG, MAINTENANCE PHASE (WEEKLY ON DAY 1, 8, 15)
     Route: 042
  3. FOLIC ACID. [Concomitant]
     Active Substance: FOLIC ACID
     Indication: PREMEDICATION
     Dosage: UNK, UNKNOWN
     Route: 065
  4. DEXAMETHASONE. [Concomitant]
     Active Substance: DEXAMETHASONE
     Indication: PREMEDICATION
     Dosage: UNK, UNKNOWN
     Route: 065
  5. PEMETREXED. [Suspect]
     Active Substance: PEMETREXED
     Dosage: 500 MG/M2, ON DAY 1 OF 21 DAY CYCLE (MAINTENANCE PHASE)
     Route: 042
  6. CARBOPLATIN. [Suspect]
     Active Substance: CARBOPLATIN
     Indication: NON-SMALL CELL LUNG CANCER
     Dosage: AUC 6, ON DAY 1 OF 21 DAY CYCLE (TREATMENT PHASE)
     Route: 042
  7. PEMETREXED. [Suspect]
     Active Substance: PEMETREXED
     Indication: NON-SMALL CELL LUNG CANCER
     Dosage: 500 MG/M2, ON DAY 1 OF 21 DAY CYCLE (TREATMENT PHASE)
     Route: 042
  8. APATORSEN [Suspect]
     Active Substance: APATORSEN
     Indication: NON-SMALL CELL LUNG CANCER
     Dosage: 3 LOADING DOSES OF 600 MG , LOADING DOSE (ON DAY -9 TO -1)
     Route: 042
  9. VITAMIN B12 [Concomitant]
     Active Substance: CYANOCOBALAMIN
     Indication: PREMEDICATION
     Dosage: UNK, UNKNOWN
     Route: 065

REACTIONS (2)
  - Renal disorder [Fatal]
  - Urinary tract disorder [Fatal]
